FAERS Safety Report 15147437 (Version 2)
Quarter: 2018Q3

REPORT INFORMATION
  Report Type: Spontaneous
  Country: None (occurrence: AU)
  Receive Date: 20180716
  Receipt Date: 20180723
  Transmission Date: 20181010
  Serious: Yes (Hospitalization, Other)
  Sender: FDA-Public Use
  Company Number: AU-ORION CORPORATION ORION PHARMA-TREX2018-2065

PATIENT
  Age: 56 Year
  Sex: Female
  Weight: 84 kg

DRUGS (4)
  1. METHOTREXATE. [Suspect]
     Active Substance: METHOTREXATE
     Indication: RHEUMATOID ARTHRITIS
     Dosage: CUMULATIVE DOSE? 1250 MG
     Route: 048
  2. METHOTREXATE. [Suspect]
     Active Substance: METHOTREXATE
     Dosage: STRENGTH: 10 MG, 125 TABLETS, SINGLE INGESTION
     Route: 048
  3. TRAMADOL SLOW RELEASE [Concomitant]
     Dosage: STRENGTH: 50 MG
     Route: 048
  4. ZOPICLONE [Concomitant]
     Active Substance: ZOPICLONE
     Dosage: STRENGTH: 7.5 MG
     Route: 048

REACTIONS (14)
  - Gamma-glutamyltransferase increased [Unknown]
  - Gastrointestinal toxicity [Unknown]
  - Diarrhoea [Unknown]
  - Aspartate aminotransferase increased [Unknown]
  - Pneumonia aspiration [Unknown]
  - Blood alkaline phosphatase increased [Unknown]
  - Alanine aminotransferase increased [Unknown]
  - Abdominal pain [Unknown]
  - Blood bilirubin increased [Unknown]
  - Bone marrow failure [Recovering/Resolving]
  - Febrile neutropenia [Unknown]
  - Intentional overdose [Unknown]
  - Mucosal inflammation [Unknown]
  - Blood lactate dehydrogenase increased [Unknown]
